FAERS Safety Report 8522710-7 (Version None)
Quarter: 2012Q3

REPORT INFORMATION
  Report Type: 
  Country: None (occurrence: None)
  Receive Date: 20120719
  Receipt Date: 20120713
  Transmission Date: 20120928
  Serious: Yes (Hospitalization)
  Sender: FDA-Public Use
  Company Number: JP-GLAXOSMITHKLINE-B0801471A

PATIENT
  Sex: Female
  Weight: 45 kg

DRUGS (11)
  1. DIGOXIN [Concomitant]
     Route: 048
  2. TRICHLORMETHIAZIDE [Concomitant]
     Route: 048
  3. EPLERENONE [Concomitant]
     Route: 048
  4. EPINASTINE HYDROCHLORIDE [Concomitant]
     Route: 048
  5. LANSOPRAZOLE [Concomitant]
     Route: 065
  6. MAGLAX [Concomitant]
     Route: 048
  7. TRACLEER [Concomitant]
     Dosage: 250MG PER DAY
     Route: 048
     Dates: start: 20071101
  8. SLOW-K [Concomitant]
     Route: 048
  9. PREDNISOLONE [Concomitant]
     Route: 065
  10. FLOLAN [Suspect]
     Indication: PULMONARY HYPERTENSION
     Dosage: 12MG PER DAY
     Route: 042
     Dates: start: 20070301
  11. TORSEMIDE [Concomitant]
     Route: 048

REACTIONS (1)
  - HYPERTHYROIDISM [None]
